FAERS Safety Report 13606060 (Version 1)
Quarter: 2017Q2

REPORT INFORMATION
  Report Type: Spontaneous
  Country: US (occurrence: US)
  Receive Date: 20170602
  Receipt Date: 20170602
  Transmission Date: 20170830
  Serious: No
  Sender: FDA-Public Use
  Company Number: US-NOVEN PHARMACEUTICALS, INC.-US2016000644

PATIENT

DRUGS (4)
  1. DAYTRANA [Suspect]
     Active Substance: METHYLPHENIDATE
     Indication: ATTENTION DEFICIT/HYPERACTIVITY DISORDER
     Dosage: APPLYING TWO 20 MG PATCHES TOGETHER, UNK
     Route: 062
     Dates: start: 2008
  2. DAYTRANA [Suspect]
     Active Substance: METHYLPHENIDATE
     Dosage: PRESCRIBED 2 BOXES OF 30MG, UNKNOWN
     Route: 062
  3. SINGULAIR [Concomitant]
     Active Substance: MONTELUKAST SODIUM
     Indication: HYPERSENSITIVITY
     Dosage: 10 MG, UNKNOWN
  4. CLARITIN-D NOS [Concomitant]
     Active Substance: LORATADINE\PSEUDOEPHEDRINE SULFATE
     Indication: HYPERSENSITIVITY

REACTIONS (4)
  - No adverse event [Unknown]
  - Wrong technique in product usage process [Unknown]
  - Off label use [Unknown]
  - Prescribed overdose [Unknown]
